FAERS Safety Report 7421031-3 (Version None)
Quarter: 2011Q2

REPORT INFORMATION
  Report Type: 
  Country: None (occurrence: None)
  Receive Date: 20110418
  Receipt Date: 20110412
  Transmission Date: 20111010
  Serious: Yes (Life-Threatening)
  Sender: FDA-Public Use
  Company Number: JP-ASTRAZENECA-2011SE15317

PATIENT
  Age: 37 Year
  Sex: Female
  Weight: 67 kg

DRUGS (3)
  1. KIPRES [Concomitant]
     Indication: ASTHMA
     Route: 048
     Dates: start: 20110307, end: 20110312
  2. SYMBICORT [Suspect]
     Indication: ASTHMA
     Route: 055
     Dates: start: 20110307, end: 20110312
  3. PREDONINE [Concomitant]
     Indication: ASTHMA
     Route: 048
     Dates: start: 20110307, end: 20110312

REACTIONS (2)
  - ALLERGIC GRANULOMATOUS ANGIITIS [None]
  - ERYTHEMA MULTIFORME [None]
